FAERS Safety Report 9888422 (Version 1)
Quarter: 2014Q1

REPORT INFORMATION
  Report Type: Spontaneous
  Country: CA (occurrence: CA)
  Receive Date: 20140211
  Receipt Date: 20140211
  Transmission Date: 20141002
  Serious: Yes (Hospitalization)
  Sender: FDA-Public Use
  Company Number: CA-ASTRAZENECA-2014SE08034

PATIENT
  Age: 52 Year
  Sex: Female

DRUGS (29)
  1. SEROQUEL [Suspect]
     Route: 048
  2. TEGRETOL [Suspect]
     Route: 065
  3. CLONAZEPAM [Suspect]
     Route: 048
  4. ACETAMINOPHEN [Suspect]
     Route: 048
  5. EPIVAL [Suspect]
     Route: 065
  6. EPIVAL [Suspect]
     Route: 048
  7. EPIVAL [Suspect]
     Route: 048
  8. OLANZAPINE [Suspect]
     Route: 048
  9. OLANZAPINE [Suspect]
     Route: 048
  10. PROCYCLIDINE HCL [Suspect]
     Route: 048
  11. RISPERIDONE [Suspect]
     Route: 048
  12. TIPRANAVIR [Suspect]
     Route: 048
  13. TRAZODONE [Suspect]
     Route: 048
  14. TRAZODONE [Suspect]
     Route: 048
  15. 3TC [Concomitant]
  16. ABACAVIR [Concomitant]
  17. BENADRYL [Concomitant]
  18. BISACODYL [Concomitant]
  19. CALCIUM CARBONATE [Concomitant]
  20. CHLORAL HYDRATE [Concomitant]
  21. FUZEON [Concomitant]
     Route: 058
  22. IMODIUM [Concomitant]
  23. KALETRA [Concomitant]
  24. LACTULOSE [Concomitant]
  25. LITHIUM [Concomitant]
  26. MAGIC MOUTHWASH [Concomitant]
  27. MEGA VIM [Concomitant]
  28. NYSTATIN [Concomitant]
  29. TEVA-ATOVAQUONE PROGUANIL [Concomitant]

REACTIONS (12)
  - Blood bilirubin increased [Unknown]
  - Hepatotoxicity [Unknown]
  - Jaundice cholestatic [Unknown]
  - Cholelithiasis [Unknown]
  - Condition aggravated [Unknown]
  - Hepatic enzyme increased [Unknown]
  - Hypomania [Recovered/Resolved]
  - Nausea [Unknown]
  - Pneumonia [Unknown]
  - Psychotic disorder [Unknown]
  - Schizophrenia [Unknown]
  - Vomiting [Unknown]
